FAERS Safety Report 7732714-X (Version None)
Quarter: 2011Q3

REPORT INFORMATION
  Report Type: 
  Country: None (occurrence: None)
  Receive Date: 20110907
  Receipt Date: 20110829
  Transmission Date: 20111222
  Serious: No
  Sender: FDA-Public Use
  Company Number: US-BIOGENIDEC-2011BI032987

PATIENT
  Age: 43 Year
  Sex: Male

DRUGS (4)
  1. AVONEX [Suspect]
     Indication: MULTIPLE SCLEROSIS
     Route: 030
     Dates: start: 20110729, end: 20110729
  2. AVONEX [Suspect]
     Route: 030
     Dates: start: 20110812, end: 20110812
  3. AVONEX [Suspect]
     Route: 030
     Dates: start: 20110805, end: 20110805
  4. AVONEX [Suspect]
     Route: 030
     Dates: start: 20110819

REACTIONS (2)
  - NIGHT SWEATS [None]
  - ASTHENIA [None]
